FAERS Safety Report 12862130 (Version 1)
Quarter: 2016Q4

REPORT INFORMATION
  Report Type: Spontaneous
  Country: US (occurrence: US)
  Receive Date: 20161019
  Receipt Date: 20161019
  Transmission Date: 20170207
  Serious: No
  Sender: FDA-Public Use
  Company Number: US-JNJFOC-20160809732

PATIENT
  Age: 67 Year
  Sex: Male
  Weight: 71.94 kg

DRUGS (3)
  1. PREDNISONE. [Concomitant]
     Active Substance: PREDNISONE
     Indication: PROSTATE CANCER
     Route: 048
     Dates: start: 20151019
  2. ZYTIGA [Suspect]
     Active Substance: ABIRATERONE ACETATE
     Indication: PROSTATE CANCER
     Dosage: 4 CAPSULES ORALLY EACH DAY WITH WATER ON EMPTY STOMACH.NO FOOD FOR 2 HOURS BEFORE OR 1 HOUR AFTER
     Route: 048
     Dates: start: 20151019
  3. LEUPRORELIN ACETATE [Concomitant]
     Active Substance: LEUPROLIDE ACETATE
     Indication: PROSTATE CANCER
     Route: 030
     Dates: start: 20160412

REACTIONS (3)
  - Essential hypertension [Not Recovered/Not Resolved]
  - Fatigue [Recovered/Resolved]
  - Macrocytosis [Not Recovered/Not Resolved]

NARRATIVE: CASE EVENT DATE: 20151019
